FAERS Safety Report 10628976 (Version 1)
Quarter: 2014Q4

REPORT INFORMATION
  Report Type: Spontaneous
  Country: US (occurrence: US)
  Receive Date: 20141205
  Receipt Date: 20141205
  Transmission Date: 20150529
  Serious: No
  Sender: FDA-Public Use
  Company Number: US-BRISTOL-MYERS SQUIBB COMPANY-21522461

PATIENT
  Age: 81 Year
  Sex: Female
  Weight: 72.11 kg

DRUGS (3)
  1. COUMADIN [Suspect]
     Active Substance: WARFARIN SODIUM
     Indication: ATRIAL FIBRILLATION
     Dosage: 1DF: 2.5 MG TO 5 MG
  2. ASPIRIN. [Concomitant]
     Active Substance: ASPIRIN
  3. XARELTO [Concomitant]
     Active Substance: RIVAROXABAN

REACTIONS (4)
  - International normalised ratio fluctuation [Unknown]
  - Dysgeusia [Unknown]
  - Chills [Unknown]
  - Retching [Unknown]
